FAERS Safety Report 6077636-8 (Version None)
Quarter: 2009Q1

REPORT INFORMATION
  Report Type: 
  Country: None (occurrence: None)
  Receive Date: 20090211
  Receipt Date: 20090129
  Transmission Date: 20090719
  Serious: Yes (Other)
  Sender: FDA-Public Use
  Company Number: FABR-1000608

PATIENT
  Age: 28 Year
  Sex: Male
  Weight: 64.6 kg

DRUGS (9)
  1. FABRAZYME          (AGALSIDASE BETA) POWDER FOR  INFUSION [Suspect]
     Indication: FABRY'S DISEASE
     Dosage: 65 MG, Q2W, INTRAVENOUS
     Route: 042
     Dates: start: 20081118
  2. FABRAZYME          (AGALSIDASE BETA) POWDER  FOR INFUSION [Suspect]
  3. PREDNISONE TAB [Concomitant]
  4. ACETAMINOPHEN [Concomitant]
  5. REMERON [Concomitant]
  6. CELEXA [Concomitant]
  7. ASPIRIN [Concomitant]
  8. ATORVASTATIN CALCIUM [Concomitant]
  9. GABAPENTIN [Concomitant]

REACTIONS (8)
  - CHILLS [None]
  - COUGH [None]
  - INFUSION RELATED REACTION [None]
  - NAUSEA [None]
  - RESPIRATORY TRACT CONGESTION [None]
  - TACHYPNOEA [None]
  - VOMITING [None]
  - WHEEZING [None]
